FAERS Safety Report 14272316 (Version 1)
Quarter: 2017Q4

REPORT INFORMATION
  Report Type: Spontaneous
  Country: US (occurrence: US)
  Receive Date: 20171211
  Receipt Date: 20171211
  Transmission Date: 20180321
  Serious: No
  Sender: FDA-Public Use
  Company Number: US-AMAG PHARMACEUTICALS, INC.-AMAG201703597

PATIENT

DRUGS (11)
  1. COREG [Concomitant]
     Active Substance: CARVEDILOL
     Indication: CARDIOVASCULAR EVENT PROPHYLAXIS
     Dosage: 6.25 MG, BID
     Route: 048
     Dates: start: 20121012
  2. LOSARTAN. [Concomitant]
     Active Substance: LOSARTAN
     Indication: HYPERTENSION
     Dosage: 25 MG, QD
     Route: 048
     Dates: start: 201511
  3. MINERAL SUPPLEMENTS [Concomitant]
     Active Substance: MINERALS
     Indication: SUPPLEMENTATION THERAPY
     Dosage: UNK
     Route: 048
  4. CELLCEPT [Concomitant]
     Active Substance: MYCOPHENOLATE MOFETIL\MYCOPHENOLATE MOFETIL HYDROCHLORIDE
     Indication: RENAL TRANSPLANT
     Dosage: 500 MG, BID
     Route: 048
     Dates: start: 20121012
  5. PRAVASTATIN. [Concomitant]
     Active Substance: PRAVASTATIN
     Indication: HYPERLIPIDAEMIA
     Dosage: 20 MG, QHS
     Route: 048
     Dates: start: 2005
  6. FLECAINIDE [Concomitant]
     Active Substance: FLECAINIDE
     Indication: ATRIAL FIBRILLATION
     Dosage: 100 MG, BID
     Route: 048
     Dates: start: 2012
  7. INTRAROSA [Suspect]
     Active Substance: PRASTERONE
     Indication: ATROPHIC VULVOVAGINITIS
     Dosage: 6.5 MG, QD (NIGHTLY)
     Route: 067
     Dates: start: 20171009
  8. PROGRAF [Concomitant]
     Active Substance: TACROLIMUS\TACROLIMUS ANHYDROUS
     Indication: RENAL TRANSPLANT
     Dosage: 1MG IN AM ; 0.5MG AT HS
     Route: 048
     Dates: start: 20121012
  9. FAMOTIDINE. [Concomitant]
     Active Substance: FAMOTIDINE
     Indication: DYSPEPSIA
     Dosage: 20 MG, QD
     Route: 048
     Dates: start: 20121012
  10. FLUCONAZOLE. [Concomitant]
     Active Substance: FLUCONAZOLE
     Indication: COCCIDIOIDOMYCOSIS
     Dosage: 100 MG, QD
     Route: 048
     Dates: start: 20121012
  11. ASPIRIN. [Concomitant]
     Active Substance: ASPIRIN
     Indication: THROMBOSIS PROPHYLAXIS
     Dosage: 81 MG, QD
     Route: 048
     Dates: start: 20121012

REACTIONS (1)
  - Vaginal discharge [Not Recovered/Not Resolved]

NARRATIVE: CASE EVENT DATE: 20171009
